FAERS Safety Report 7970277-4 (Version None)
Quarter: 2011Q4

REPORT INFORMATION
  Report Type: 
  Country: None (occurrence: None)
  Receive Date: 20111212
  Receipt Date: 20111130
  Transmission Date: 20120403
  Serious: Yes (Hospitalization)
  Sender: FDA-Public Use
  Company Number: CA-JNJFOC-20111002338

PATIENT
  Age: 51 Year
  Sex: Female
  Weight: 90.72 kg

DRUGS (5)
  1. EXTRA STENGTH TYLENOL [Suspect]
     Route: 048
  2. EFFEXOR [Concomitant]
     Indication: PRODUCT USED FOR UNKNOWN INDICATION
  3. PEPCID [Suspect]
     Route: 048
  4. PEPCID [Suspect]
     Indication: HYPERCHLORHYDRIA
     Route: 048
  5. EXTRA STENGTH TYLENOL [Suspect]
     Indication: PAIN
     Route: 048

REACTIONS (10)
  - DIARRHOEA [None]
  - PRODUCT QUALITY ISSUE [None]
  - ABDOMINAL PAIN UPPER [None]
  - NAUSEA [None]
  - HEART RATE DECREASED [None]
  - DIZZINESS [None]
  - VOMITING [None]
  - BLOOD PRESSURE DECREASED [None]
  - HEART RATE INCREASED [None]
  - SYNCOPE [None]
